FAERS Safety Report 8927059 (Version 1)
Quarter: 2012Q4

REPORT INFORMATION
  Report Type: 
  Country: AU (occurrence: AU)
  Receive Date: 20121127
  Receipt Date: 20121127
  Transmission Date: 20130627
  Serious: Yes (Other)
  Sender: FDA-Public Use
  Company Number: AU-ROCHE-1160038

PATIENT

DRUGS (2)
  1. LUCENTIS [Suspect]
     Indication: PRODUCT USED FOR UNKNOWN INDICATION
     Route: 050
  2. AVASTIN [Concomitant]

REACTIONS (5)
  - Hypersensitivity [Unknown]
  - Photosensitivity reaction [Unknown]
  - Lip swelling [Unknown]
  - Pharyngeal oedema [Unknown]
  - Skin reaction [Unknown]
